FAERS Safety Report 8417572-2 (Version None)
Quarter: 2012Q2

REPORT INFORMATION
  Report Type: 
  Country: None (occurrence: None)
  Receive Date: 20120606
  Receipt Date: 20120601
  Transmission Date: 20120825
  Serious: Yes (Other)
  Sender: FDA-Public Use
  Company Number: US-AMGEN-USASP2012032997

PATIENT
  Age: 54 Year
  Sex: Male
  Weight: 72.2 kg

DRUGS (16)
  1. COPEGUS [Concomitant]
     Dosage: 200 MG, UNK
  2. MS CONTIN [Concomitant]
     Dosage: 15 MG, BID
  3. ULTRAVATE                          /00008504/ [Concomitant]
     Dosage: 0.05 %, UNK
     Route: 061
  4. CORGARD [Concomitant]
     Dosage: 40 MG, ONE TIME DOSE
  5. NEUPOGEN [Suspect]
     Indication: NEUTROPENIA
  6. VIAGRA [Concomitant]
  7. ANTINEOPLASTIC AGENTS [Concomitant]
  8. NEXIUM [Concomitant]
     Dosage: 20 MG, UNK
     Dates: start: 20110426
  9. MULTIVITAMIN [Concomitant]
     Dosage: UNK
  10. OXYCODONE HYDROCHLORIDE [Concomitant]
     Indication: BACK PAIN
     Dosage: 15 MG, PRN
     Dates: start: 20110426, end: 20120512
  11. LOCOID LIPOCREAM [Concomitant]
     Indication: RASH
     Dosage: 0.1 %, BID
  12. PEGASYS [Concomitant]
     Dosage: 90 MG, QWK
     Route: 058
  13. CLOBETASOL PROPIONATE [Concomitant]
  14. VITAMIN D [Concomitant]
     Dosage: UNK
     Route: 048
     Dates: start: 20110426
  15. LIDEX [Concomitant]
     Dosage: 0.05 %, UNK
     Dates: start: 20120418
  16. OXYCONTIN [Concomitant]
     Indication: BACK PAIN

REACTIONS (3)
  - VIRAL INFECTION [None]
  - RASH [None]
  - JOINT EFFUSION [None]
